FAERS Safety Report 7950364-7 (Version None)
Quarter: 2011Q4

REPORT INFORMATION
  Report Type: 
  Country: None (occurrence: None)
  Receive Date: 20111130
  Receipt Date: 20111118
  Transmission Date: 20120403
  Serious: Yes (Hospitalization, Other)
  Sender: FDA-Public Use
  Company Number: US-BAYER-2011-062537

PATIENT
  Age: 30 Year
  Sex: Female
  Weight: 79.365 kg

DRUGS (16)
  1. YASMIN [Suspect]
     Indication: CONTRACEPTION
  2. DROSPIRENONE AND ETHINYL ESTRADIOL [Suspect]
     Indication: CONTRACEPTION
  3. TOPAMAX [Concomitant]
     Dosage: 25 MG, UNK
     Dates: start: 20081101, end: 20090219
  4. YASMIN [Suspect]
     Indication: ACNE
     Dosage: UNK
     Dates: start: 20060101, end: 20070101
  5. YASMIN [Suspect]
     Indication: PREMENSTRUAL SYNDROME
  6. VICODIN [Concomitant]
  7. KAPIDEX [Concomitant]
  8. YAZ [Suspect]
     Indication: ACNE
     Dosage: UNK
     Dates: start: 20080701, end: 20090410
  9. DROSPIRENONE AND ETHINYL ESTRADIOL [Suspect]
     Indication: ACNE
     Dosage: UNK
     Dates: start: 20090410, end: 20090701
  10. CYCLOBENZAPRINE [Concomitant]
     Dosage: 10 MG, QD
     Dates: start: 20080101, end: 20110101
  11. FLUOXETINE [Concomitant]
     Dosage: UNK
     Dates: start: 20081101, end: 20090201
  12. AMBIEN [Concomitant]
     Dosage: 12.5 MG, QD
     Dates: start: 20081201
  13. RELPAX [Concomitant]
     Dosage: UNK
     Dates: start: 20070101
  14. YAZ [Suspect]
     Indication: PREMENSTRUAL SYNDROME
  15. DROSPIRENONE AND ETHINYL ESTRADIOL [Suspect]
     Indication: PREMENSTRUAL SYNDROME
  16. YAZ [Suspect]
     Indication: CONTRACEPTION

REACTIONS (7)
  - GALLBLADDER DISORDER [None]
  - PAIN [None]
  - CHOLELITHIASIS [None]
  - INJURY [None]
  - VOMITING [None]
  - ABDOMINAL PAIN [None]
  - CHOLECYSTITIS CHRONIC [None]
